FAERS Safety Report 4284250-3 (Version None)
Quarter: 2004Q1

REPORT INFORMATION
  Report Type: 
  Country: None (occurrence: None)
  Receive Date: 20040130
  Receipt Date: 20040121
  Transmission Date: 20041129
  Serious: Yes (Life-Threatening, Hospitalization)
  Sender: FDA-Public Use
  Company Number: 04H-144-0247926-00

PATIENT
  Age: 54 Year
  Sex: Male

DRUGS (6)
  1. SEVOFLURANE [Suspect]
     Indication: ANAESTHESIA
     Dosage: 1.5 - 2% INHALATION
     Route: 055
     Dates: start: 20040113, end: 20040113
  2. PROPOFOL [Concomitant]
  3. FENTANYL [Concomitant]
  4. SUXAMETHONIUM CHLORIDE [Concomitant]
  5. REMIFENTANIL [Concomitant]
  6. ROCURONIUM [Concomitant]

REACTIONS (7)
  - ACIDOSIS [None]
  - ANAESTHETIC COMPLICATION [None]
  - ANAESTHETIC COMPLICATION PULMONARY [None]
  - BLOOD CREATINE PHOSPHOKINASE INCREASED [None]
  - BRONCHOSPASM [None]
  - HYPERCAPNIA [None]
  - HYPERGLYCAEMIA [None]
